FAERS Safety Report 24960847 (Version 1)
Quarter: 2025Q1

REPORT INFORMATION
  Report Type: Spontaneous
  Country: SG (occurrence: SG)
  Receive Date: 20250212
  Receipt Date: 20250212
  Transmission Date: 20250409
  Serious: Yes (Hospitalization)
  Sender: PAREXEL
  Company Number: SG-ZAMBON-202500374COR

PATIENT

DRUGS (1)
  1. FOSFOMYCIN TROMETHAMINE [Suspect]
     Active Substance: FOSFOMYCIN TROMETHAMINE
     Indication: Product used for unknown indication
     Route: 065

REACTIONS (2)
  - Pallor [Unknown]
  - Stupor [Unknown]

NARRATIVE: CASE EVENT DATE: 20241126
